FAERS Safety Report 14571162 (Version 1)
Quarter: 2018Q1

REPORT INFORMATION
  Report Type: Report from Study
  Country: US (occurrence: US)
  Receive Date: 20180226
  Receipt Date: 20180226
  Transmission Date: 20180509
  Serious: Yes (Hospitalization)
  Sender: FDA-Public Use
  Company Number: US-ROCHE-2073954

PATIENT
  Age: 38 Year
  Sex: Female

DRUGS (2)
  1. DIAZEPAM. [Suspect]
     Active Substance: DIAZEPAM
     Indication: ARTHROPOD STING
     Route: 065
  2. HALOPERIDOL. [Suspect]
     Active Substance: HALOPERIDOL
     Indication: ARTHROPOD STING
     Route: 065

REACTIONS (2)
  - Encephalopathy [Unknown]
  - Respiratory failure [Unknown]
